FAERS Safety Report 17962782 (Version 1)
Quarter: 2020Q2

REPORT INFORMATION
  Report Type: Spontaneous
  Country: AT (occurrence: AT)
  Receive Date: 20200630
  Receipt Date: 20200630
  Transmission Date: 20200714
  Serious: Yes (Other)
  Sender: FDA-Public Use
  Company Number: AT-TEVA-2020-AT-1792662

PATIENT
  Age: 57 Year
  Sex: Male

DRUGS (9)
  1. ROSUVASTATIN. [Concomitant]
     Active Substance: ROSUVASTATIN
     Dosage: 40 MG
     Route: 048
     Dates: end: 20200331
  2. KCI RETARD 600MG [Concomitant]
     Dosage: 6 DOSAGE FORMS
     Route: 048
     Dates: end: 20200401
  3. ROSUVASTATIN. [Concomitant]
     Active Substance: ROSUVASTATIN
     Dosage: 20 MG
     Route: 048
     Dates: start: 20200401
  4. CONCOR 5 MG [Concomitant]
     Active Substance: BISOPROLOL FUMARATE
     Dosage: 0.5 DOSAGE FORMS
     Route: 048
     Dates: end: 20200401
  5. PLAVIX [Suspect]
     Active Substance: CLOPIDOGREL BISULFATE
     Indication: VASCULAR GRAFT
     Dosage: 1 DOSAGE FORM
     Route: 048
     Dates: start: 20191210, end: 202004
  6. THROMBO ASS [Concomitant]
     Active Substance: ASPIRIN
     Dosage: 100 MG
     Route: 048
     Dates: end: 20200401
  7. PANTOPRAZOL [Concomitant]
     Active Substance: PANTOPRAZOLE SODIUM
     Dosage: 40 MG
     Route: 048
     Dates: end: 20200401
  8. CLOPIDOGREL 75 MG FILMTABLETTEN [Suspect]
     Active Substance: CLOPIDOGREL BISULFATE
     Indication: VASCULAR GRAFT
     Dosage: 75 MG
     Route: 048
     Dates: start: 202004
  9. Q10 60 MG [Concomitant]
     Dosage: 1 DOSAGE FORM
     Route: 048

REACTIONS (3)
  - Peripheral coldness [Recovered/Resolved]
  - Drug eruption [Recovered/Resolved]
  - Hypoaesthesia oral [Recovered/Resolved]

NARRATIVE: CASE EVENT DATE: 202002
